FAERS Safety Report 7991646-2 (Version None)
Quarter: 2011Q4

REPORT INFORMATION
  Report Type: 
  Country: None (occurrence: None)
  Receive Date: 20111219
  Receipt Date: 20111208
  Transmission Date: 20120403
  Serious: Yes (Other)
  Sender: FDA-Public Use
  Company Number: US-BRISTOL-MYERS SQUIBB COMPANY-16280562

PATIENT
  Age: 50 Year
  Sex: Female
  Weight: 86 kg

DRUGS (1)
  1. ABILIFY [Suspect]
     Dates: start: 20030101

REACTIONS (7)
  - HEPATIC STEATOSIS [None]
  - WEIGHT INCREASED [None]
  - THYROID DISORDER [None]
  - LOOSE TOOTH [None]
  - FALL [None]
  - FEELING ABNORMAL [None]
  - DROOLING [None]
